FAERS Safety Report 9242523 (Version 4)
Quarter: 2014Q3

REPORT INFORMATION
  Report Type: Spontaneous
  Country: US (occurrence: US)
  Receive Date: 20130419
  Receipt Date: 20140905
  Transmission Date: 20150326
  Serious: Yes (Death, Hospitalization, Other)
  Sender: FDA-Public Use
  Company Number: US-MERCK-1304USA008444

PATIENT
  Sex: Female
  Weight: 110.2 kg

DRUGS (1)
  1. JANUVIA [Suspect]
     Active Substance: SITAGLIPTIN PHOSPHATE
     Indication: TYPE 2 DIABETES MELLITUS
     Dosage: 100 MG, QD
     Route: 048
     Dates: start: 20070725, end: 20090413

REACTIONS (51)
  - Acute myocardial infarction [Unknown]
  - Pancreatitis [Unknown]
  - Cholelithiasis [Unknown]
  - Disease progression [Unknown]
  - Neutropenia [Unknown]
  - Abdominal hernia [Unknown]
  - Paraesthesia [Unknown]
  - Constipation [Unknown]
  - Metastases to stomach [Unknown]
  - Hepatic failure [Unknown]
  - Dizziness [Unknown]
  - Dyspepsia [Unknown]
  - Abdominal hernia repair [Unknown]
  - Device extrusion [Unknown]
  - Therapeutic response decreased [Unknown]
  - Arthralgia [Unknown]
  - Metastases to liver [Fatal]
  - Metastases to central nervous system [Unknown]
  - Bile duct stenosis [Unknown]
  - Aortic arteriosclerosis [Unknown]
  - Hepatic steatosis [Unknown]
  - Vitamin B12 deficiency [Unknown]
  - Visual impairment [Unknown]
  - Depression [Unknown]
  - Failure to thrive [Unknown]
  - Pancreatic carcinoma metastatic [Fatal]
  - Alopecia [Unknown]
  - Treatment noncompliance [Unknown]
  - Gastric disorder [Unknown]
  - Rash [Unknown]
  - Cardio-respiratory arrest [Fatal]
  - Non-alcoholic steatohepatitis [Unknown]
  - Anaemia of chronic disease [Unknown]
  - Asthenia [Unknown]
  - Peripheral sensory neuropathy [Unknown]
  - Oesophagitis [Unknown]
  - Coronary artery disease [Unknown]
  - Biliary sphincterotomy [Unknown]
  - Bile duct stent insertion [Unknown]
  - Uterine leiomyoma [Unknown]
  - Decreased appetite [Unknown]
  - Hypokalaemia [Unknown]
  - Hiatus hernia [Unknown]
  - Gastritis haemorrhagic [Unknown]
  - Impaired gastric emptying [Unknown]
  - No therapeutic response [Unknown]
  - Atrial fibrillation [Unknown]
  - Anxiety [Unknown]
  - Gait disturbance [Unknown]
  - Tachycardia [Unknown]
  - Duodenal ulcer [Recovering/Resolving]

NARRATIVE: CASE EVENT DATE: 20120730
